FAERS Safety Report 9266310 (Version 1)
Quarter: 2013Q2

REPORT INFORMATION
  Report Type: Spontaneous
  Country: US (occurrence: US)
  Receive Date: 20130502
  Receipt Date: 20130502
  Transmission Date: 20140414
  Serious: Yes (Other)
  Sender: FDA-Public Use
  Company Number: US-JNJFOC-20130417057

PATIENT
  Sex: Female

DRUGS (3)
  1. TOPAMAX [Suspect]
     Indication: CONVULSION
     Route: 048
  2. LAMICTAL [Suspect]
     Indication: CONVULSION
     Route: 048
  3. LAMICTAL [Suspect]
     Indication: CONVULSION
     Route: 048

REACTIONS (2)
  - Subchorionic haematoma [Unknown]
  - Exposure during pregnancy [Recovered/Resolved]
